FAERS Safety Report 12728074 (Version 1)
Quarter: 2016Q3

REPORT INFORMATION
  Report Type: Spontaneous
  Country: CH (occurrence: CH)
  Receive Date: 20160909
  Receipt Date: 20160909
  Transmission Date: 20161109
  Serious: Yes (Life-Threatening, Hospitalization, Other)
  Sender: FDA-Public Use
  Company Number: CH-GLAXOSMITHKLINE-CH2016128918

PATIENT
  Age: 78 Year
  Sex: Female

DRUGS (10)
  1. ASPIRIN CARDIO [Concomitant]
     Active Substance: ASPIRIN
     Dosage: 100 MG, QD
     Route: 048
  2. CITALOPRAM [Concomitant]
     Active Substance: CITALOPRAM HYDROBROMIDE
     Dosage: UNK
     Route: 048
  3. ATORVASTATIN [Concomitant]
     Active Substance: ATORVASTATIN
     Dosage: 20 MG, QD
     Route: 048
  4. EUTHYROX TABLET [Concomitant]
     Dosage: 25 ?G, QD
     Route: 048
  5. NOVALGIN TABLET (METAMIZOL) [Concomitant]
     Dosage: UNK
     Route: 048
  6. TARGIN [Concomitant]
     Active Substance: NALOXONE HYDROCHLORIDE\OXYCODONE HYDROCHLORIDE
     Dosage: UNK
     Route: 048
     Dates: start: 20160220, end: 20160329
  7. METO ZEROK [Concomitant]
     Active Substance: METOPROLOL SUCCINATE
     Dosage: 25 MG, QD
     Route: 048
  8. PANTOPRAZOL [Concomitant]
     Active Substance: PANTOPRAZOLE SODIUM
     Dosage: 20 MG, BID
     Route: 048
  9. ZINACEF [Suspect]
     Active Substance: CEFUROXIME SODIUM
     Indication: ANTIBIOTIC PROPHYLAXIS
     Dosage: UNK
     Route: 042
     Dates: start: 20160329, end: 20160329
  10. VITAMIN D (COLECALCIFEROL) [Concomitant]
     Dosage: UNK
     Route: 048

REACTIONS (8)
  - Resuscitation [Recovered/Resolved]
  - Type I hypersensitivity [Not Recovered/Not Resolved]
  - Dyspnoea [Recovered/Resolved]
  - Allergy test positive [Recovered/Resolved]
  - Anaphylactic reaction [Recovered/Resolved]
  - Loss of consciousness [Recovered/Resolved]
  - Skin test positive [Recovered/Resolved]
  - Dysgeusia [Recovered/Resolved]

NARRATIVE: CASE EVENT DATE: 20160329
